FAERS Safety Report 8984812 (Version 1)
Quarter: 2012Q4

REPORT INFORMATION
  Report Type: Report from Study
  Country: CA (occurrence: CA)
  Receive Date: 20121225
  Receipt Date: 20121225
  Transmission Date: 20130627
  Serious: Yes (Other)
  Sender: FDA-Public Use
  Company Number: CA-JNJFOC-20121209567

PATIENT
  Age: 65 Year
  Sex: Female
  Weight: 87 kg

DRUGS (6)
  1. REMICADE [Suspect]
     Indication: RHEUMATOID ARTHRITIS
     Route: 042
     Dates: start: 2006
  2. PREDNISONE [Concomitant]
     Dosage: since 6 years
     Route: 065
  3. LYRICA [Concomitant]
     Indication: NEURALGIA
     Dosage: since 6 years
     Route: 048
     Dates: start: 201211
  4. ALL OTHER THERAPEUTIC PRODUCT [Concomitant]
     Dosage: since 6 years
     Route: 065
     Dates: start: 201211
  5. GABAPENTIN [Concomitant]
     Indication: NEURALGIA
     Dosage: since 6 years
     Route: 048
  6. VITAMIN D [Concomitant]
     Dosage: since 6 years
     Route: 065

REACTIONS (1)
  - Rib fracture [Unknown]
